FAERS Safety Report 4481369-9 (Version None)
Quarter: 2004Q3

REPORT INFORMATION
  Report Type: 
  Country: None (occurrence: None)
  Receive Date: 20040923
  Receipt Date: 20040629
  Transmission Date: 20050211
  Serious: No
  Sender: FDA-Public Use
  Company Number: USA031050968

PATIENT
  Age: 81 Year
  Sex: Female
  Weight: 64 kg

DRUGS (2)
  1. FORTEO [Suspect]
     Indication: OSTEOPOROSIS
     Dosage: 20 UG DAY
     Dates: start: 20031027, end: 20040305
  2. CHOLESTEROL [Concomitant]

REACTIONS (5)
  - BLOOD CALCIUM INCREASED [None]
  - BLOOD PRESSURE INCREASED [None]
  - INJECTION SITE HAEMORRHAGE [None]
  - MUSCLE CRAMP [None]
  - VITAMIN D DECREASED [None]
